FAERS Safety Report 6623578-6 (Version None)
Quarter: 2010Q1

REPORT INFORMATION
  Report Type: 
  Country: None (occurrence: None)
  Receive Date: 20100305
  Receipt Date: 20100224
  Transmission Date: 20100710
  Serious: Yes (Hospitalization, Other)
  Sender: FDA-Public Use
  Company Number: 2010US000441

PATIENT
  Age: 26 Year
  Sex: Female

DRUGS (2)
  1. PROGRAF [Suspect]
     Indication: RENAL TRANSPLANT
     Dosage: ORAL
     Route: 048
     Dates: end: 20091101
  2. ERYTHROPOIETIN (ERYTHROPOIETIN) [Concomitant]

REACTIONS (2)
  - AMAUROSIS [None]
  - FANCONI SYNDROME [None]
